FAERS Safety Report 8394126-8 (Version None)
Quarter: 2012Q2

REPORT INFORMATION
  Report Type: 
  Country: None (occurrence: None)
  Receive Date: 20120523
  Receipt Date: 20120509
  Transmission Date: 20120825
  Serious: Yes (Hospitalization, Other)
  Sender: FDA-Public Use
  Company Number: DSA_56128_2012

PATIENT
  Sex: Male

DRUGS (47)
  1. NALOXONE [Concomitant]
  2. PERCOCET [Concomitant]
  3. COMPAZINE /00013304/ [Concomitant]
  4. CELEBREX [Concomitant]
  5. ULTRAM [Concomitant]
  6. RADIATION THERAPY [Concomitant]
  7. METRONIDAZOLE [Concomitant]
  8. ADRIAMYCIN PFS [Concomitant]
  9. PIPERACILLIN AND TAZOBACTAM [Concomitant]
  10. LORAZEPAM [Concomitant]
  11. MORPHINE SULFATE [Concomitant]
  12. ONDANSETRON [Concomitant]
  13. ATIVAN [Concomitant]
  14. CILOXAN [Concomitant]
  15. DESONIDE [Concomitant]
  16. PREVACID [Concomitant]
  17. VINBLASTINE SULFATE [Concomitant]
  18. AMOXICILLIN [Concomitant]
  19. SYNTHROID [Concomitant]
  20. LYRICA [Concomitant]
  21. PROCHLORPERAZINE [Concomitant]
  22. PROMETHAZINE [Concomitant]
  23. NAPROXEN (ALEVE) [Concomitant]
  24. DOCUSATE SODIUM [Concomitant]
  25. CHEMOTHERAPEUTICS NOS [Concomitant]
  26. DARVOCET-N 50 [Concomitant]
  27. ENTEX PSE [Concomitant]
  28. IBUPROFEN [Concomitant]
  29. MAGNESIUM HYDROXIDE TAB [Concomitant]
  30. COLACE [Concomitant]
  31. CIPROFLOXACIN [Concomitant]
  32. AMOXICILLIN AND CLAVULANATE POTASSIUM [Concomitant]
  33. PHENAZOPYRIDINE HCL TAB [Concomitant]
  34. HYDROMORPHONE HCL [Concomitant]
  35. NEULASTA [Concomitant]
  36. OXYCODONE HYDROCHLORIDE [Concomitant]
  37. OXYCODONE/APAP /01601701/ [Concomitant]
  38. ELIDEL [Suspect]
     Indication: ECZEMA
     Dosage: (DF TOPICAL)
     Route: 061
     Dates: start: 20050412, end: 20070201
  39. ZANAFLEX [Concomitant]
  40. BLEOMYCIN [Concomitant]
  41. DACARBAZINE [Concomitant]
  42. ZOLPIDEM [Concomitant]
  43. DIPHENHYDRAMINE HCL [Concomitant]
  44. LEVAQUIN [Concomitant]
  45. KETOCONAZOLE [Concomitant]
  46. LIDODERM [Concomitant]
  47. AUGMENTIN '125' [Concomitant]

REACTIONS (59)
  - INJURY [None]
  - ANGINA PECTORIS [None]
  - DRUG INEFFECTIVE [None]
  - OTITIS EXTERNA [None]
  - HYPOTHYROIDISM [None]
  - HODGKIN'S DISEASE [None]
  - HEPATIC CYST [None]
  - DYSPHAGIA [None]
  - PYREXIA [None]
  - DYSPHONIA [None]
  - FALL [None]
  - CHONDROMALACIA [None]
  - NEPHROLITHIASIS [None]
  - INTERVERTEBRAL DISC DEGENERATION [None]
  - ABDOMINAL PAIN [None]
  - APPENDICITIS PERFORATED [None]
  - DYSURIA [None]
  - EAR PAIN [None]
  - WEIGHT DECREASED [None]
  - SOFT TISSUE MASS [None]
  - RADIATION OESOPHAGITIS [None]
  - PROSTATOMEGALY [None]
  - POSTOPERATIVE WOUND INFECTION [None]
  - NECK PAIN [None]
  - ACCIDENT AT WORK [None]
  - SINUS CONGESTION [None]
  - CONJUNCTIVITIS [None]
  - SEBORRHOEIC DERMATITIS [None]
  - ABDOMINAL HERNIA [None]
  - INTERVERTEBRAL DISC PROTRUSION [None]
  - DERMATITIS CONTACT [None]
  - DIARRHOEA [None]
  - POST PROCEDURAL CELLULITIS [None]
  - BACK PAIN [None]
  - BRONCHITIS [None]
  - OROPHARYNGEAL PAIN [None]
  - EXOSTOSIS [None]
  - MUCOSAL INFLAMMATION [None]
  - MENISCUS LESION [None]
  - NEUROENDOCRINE CARCINOMA [None]
  - DIVERTICULUM INTESTINAL [None]
  - VOMITING [None]
  - MUSCULOSKELETAL STIFFNESS [None]
  - KYPHOSIS [None]
  - ARTHRALGIA [None]
  - ABDOMINAL ABSCESS [None]
  - DECREASED APPETITE [None]
  - NAUSEA [None]
  - LIGAMENT SPRAIN [None]
  - JOINT EFFUSION [None]
  - RADIATION INJURY [None]
  - SCOLIOSIS [None]
  - PAIN [None]
  - HEPATIC LESION [None]
  - SINUS DISORDER [None]
  - ACUTE SINUSITIS [None]
  - UPPER-AIRWAY COUGH SYNDROME [None]
  - SYNOVIAL CYST [None]
  - THYROID MASS [None]
